FAERS Safety Report 6347809-5 (Version None)
Quarter: 2009Q3

REPORT INFORMATION
  Report Type: 
  Country: None (occurrence: None)
  Receive Date: 20090910
  Receipt Date: 20090901
  Transmission Date: 20100115
  Serious: Yes (Disabling)
  Sender: FDA-Public Use
  Company Number: B0568899A

PATIENT
  Sex: Male

DRUGS (5)
  1. ZELITREX [Suspect]
     Dosage: 250MG TWICE PER DAY
     Route: 048
  2. NORVIR [Suspect]
     Indication: HIV INFECTION
     Dosage: 100MG TWICE PER DAY
     Route: 048
     Dates: start: 20070619, end: 20090205
  3. PREZISTA [Suspect]
     Indication: HIV INFECTION
     Dosage: 600MG TWICE PER DAY
     Route: 048
     Dates: start: 20080801, end: 20090205
  4. VIRAMUNE [Suspect]
     Indication: HIV INFECTION
     Dosage: 200MG TWICE PER DAY
     Route: 048
     Dates: start: 20020812
  5. EXTENCILLINE [Concomitant]
     Indication: PRIMARY SYPHILIS
     Dates: start: 20081201

REACTIONS (6)
  - MACULOPATHY [None]
  - RETINAL DISORDER [None]
  - RETINOPATHY [None]
  - SCOTOMA [None]
  - VISUAL ACUITY REDUCED [None]
  - WRONG TECHNIQUE IN DRUG USAGE PROCESS [None]
